FAERS Safety Report 10664028 (Version 1)
Quarter: 2014Q4

REPORT INFORMATION
  Report Type: Spontaneous
  Country: None (occurrence: None)
  Receive Date: 20141218
  Receipt Date: 20141218
  Transmission Date: 20150529
  Serious: Yes (Other)
  Sender: FDA-Public Use
  Company Number: None

PATIENT
  Age: 34 Year
  Sex: Female
  Weight: 50.35 kg

DRUGS (1)
  1. CYTOTEC [Suspect]
     Active Substance: MISOPROSTOL
     Indication: ABORTION INDUCED
     Dosage: 4 PILLS 1 TIME ONLY TAKEN BY MOUTH
     Route: 048
     Dates: start: 20141217, end: 20141217

REACTIONS (2)
  - Intercepted drug dispensing error [None]
  - Drug dispensing error [None]

NARRATIVE: CASE EVENT DATE: 20141217
